FAERS Safety Report 23825921 (Version 3)
Quarter: 2024Q3

REPORT INFORMATION
  Report Type: Spontaneous
  Country: US (occurrence: US)
  Receive Date: 20240507
  Receipt Date: 20240805
  Transmission Date: 20241017
  Serious: No
  Sender: PFIZER
  Company Number: US-PFIZER INC-202400100767

PATIENT
  Age: 78 Year
  Sex: Male

DRUGS (2)
  1. CIBINQO [Suspect]
     Active Substance: ABROCITINIB
     Dosage: 200 MG, DAILY
     Route: 048
  2. CIBINQO [Suspect]
     Active Substance: ABROCITINIB
     Dosage: 100 MG

REACTIONS (5)
  - Pain [Unknown]
  - Nausea [Unknown]
  - Malaise [Unknown]
  - Pruritus [Not Recovered/Not Resolved]
  - Drug ineffective [Unknown]
